FAERS Safety Report 23142542 (Version 2)
Quarter: 2023Q4

REPORT INFORMATION
  Report Type: Spontaneous
  Country: US (occurrence: US)
  Receive Date: 20231103
  Receipt Date: 20231205
  Transmission Date: 20240110
  Serious: No
  Sender: FDA-Public Use
  Company Number: US-HETERO-HET2023US03104

PATIENT
  Sex: Male
  Weight: 68.027 kg

DRUGS (2)
  1. MARAVIROC [Suspect]
     Active Substance: MARAVIROC
     Indication: Product used for unknown indication
     Dosage: 300 MILLIGRAM, BID
     Route: 048
     Dates: start: 20230923, end: 20230928
  2. TYROSINE [Concomitant]
     Active Substance: TYROSINE
     Indication: Hypothyroidism
     Dosage: UNK
     Route: 065

REACTIONS (3)
  - Ear discomfort [Not Recovered/Not Resolved]
  - Hyperacusis [Not Recovered/Not Resolved]
  - Auditory disorder [Not Recovered/Not Resolved]
